FAERS Safety Report 13258439 (Version 2)
Quarter: 2017Q1

REPORT INFORMATION
  Report Type: Spontaneous
  Country: US (occurrence: US)
  Receive Date: 20170222
  Receipt Date: 20170222
  Transmission Date: 20170428
  Serious: No
  Sender: FDA-Public Use
  Company Number: US-TEVA-736164ACC

PATIENT
  Sex: Female

DRUGS (1)
  1. PARAGARD T 380A [Suspect]
     Active Substance: COPPER
     Indication: CONTRACEPTION
     Route: 015
     Dates: start: 20170119, end: 20170119

REACTIONS (2)
  - Complication of device insertion [Recovered/Resolved]
  - Uterine spasm [Unknown]

NARRATIVE: CASE EVENT DATE: 20170119
